FAERS Safety Report 10851413 (Version 2)
Quarter: 2015Q1

REPORT INFORMATION
  Report Type: Spontaneous
  Country: US (occurrence: US)
  Receive Date: 20150222
  Receipt Date: 20150222
  Transmission Date: 20150721
  Serious: No
  Sender: FDA-Public Use
  Company Number: US-ALLERGAN-1408425US

PATIENT
  Sex: Female

DRUGS (1)
  1. BOTOX [Suspect]
     Active Substance: ONABOTULINUMTOXINA
     Indication: MIGRAINE
     Dosage: 125 UNITS, SINGLE
     Route: 030
     Dates: start: 20140401, end: 20140401

REACTIONS (7)
  - Vision blurred [Recovered/Resolved]
  - Eyelid ptosis [Unknown]
  - Facial paresis [Unknown]
  - Brow ptosis [Unknown]
  - Injection site haemorrhage [Unknown]
  - Musculoskeletal pain [Unknown]
  - Neck pain [Recovering/Resolving]
